FAERS Safety Report 17257260 (Version 1)
Quarter: 2020Q1

REPORT INFORMATION
  Report Type: Spontaneous
  Country: CH (occurrence: CH)
  Receive Date: 20200110
  Receipt Date: 20200110
  Transmission Date: 20200409
  Serious: Yes (Death)
  Sender: FDA-Public Use
  Company Number: CH-BAYER-2019-128349

PATIENT
  Sex: Female

DRUGS (9)
  1. OPSUMIT [Concomitant]
     Active Substance: MACITENTAN
     Dosage: 10 MG, QD
     Route: 048
  2. ENTEROCOCCUS FAECIUM [Concomitant]
     Active Substance: ENTEROCOCCUS FAECIUM
     Dosage: 1 DF, TID
     Route: 048
  3. VITAMIN D3 WILD [Concomitant]
     Active Substance: CHOLECALCIFEROL
     Dosage: 10 GTT, QD
  4. DIGOXIN. [Concomitant]
     Active Substance: DIGOXIN
     Dosage: 0.125 MG, QOD
     Route: 048
  5. ESIDREX [Concomitant]
     Active Substance: HYDROCHLOROTHIAZIDE
     Dosage: 25 MG, QD
     Route: 048
  6. HEPAGEL [Concomitant]
     Active Substance: HEPARIN SODIUM
  7. ELIQUIS [Concomitant]
     Active Substance: APIXABAN
     Dosage: 2.5 MG, BID
  8. ADEMPAS [Suspect]
     Active Substance: RIOCIGUAT
     Indication: PULMONARY ARTERIAL HYPERTENSION
     Dosage: 1.5 MG, TID
     Route: 048
     Dates: start: 20181030
  9. KALIUM [POTASSIUM] [Concomitant]
     Dosage: 1 DF, QD
     Route: 048

REACTIONS (2)
  - Death [Fatal]
  - Therapy change [None]
